FAERS Safety Report 19802764 (Version 1)
Quarter: 2021Q3

REPORT INFORMATION
  Report Type: Spontaneous
  Country: US (occurrence: US)
  Receive Date: 20210903
  Receipt Date: 20210903
  Transmission Date: 20211014
  Serious: Yes (Other)
  Sender: FDA-Public Use
  Company Number: None

PATIENT
  Age: 66 Year
  Sex: Female
  Weight: 59.88 kg

DRUGS (6)
  1. BORON. [Concomitant]
     Active Substance: BORON
  2. XYZAL [Concomitant]
     Active Substance: LEVOCETIRIZINE DIHYDROCHLORIDE
  3. IMIQUIMOD 5% CREAM PACKET [Suspect]
     Active Substance: IMIQUIMOD
     Indication: PRECANCEROUS CELLS PRESENT
     Dosage: ?          QUANTITY:12 PACKETS ;?
     Route: 061
     Dates: start: 20210816, end: 20210824
  4. LOSARTAN. [Concomitant]
     Active Substance: LOSARTAN
  5. HYDROCHLOROTHIAZIDE. [Concomitant]
     Active Substance: HYDROCHLOROTHIAZIDE
  6. SIMVASTATIN. [Concomitant]
     Active Substance: SIMVASTATIN

REACTIONS (2)
  - Scab [None]
  - Lip swelling [None]

NARRATIVE: CASE EVENT DATE: 20210823
